FAERS Safety Report 7617142-X (Version None)
Quarter: 2011Q3

REPORT INFORMATION
  Report Type: 
  Country: None (occurrence: None)
  Receive Date: 20110718
  Receipt Date: 20110712
  Transmission Date: 20111222
  Serious: Yes (Other)
  Sender: FDA-Public Use
  Company Number: US-JNJFOC-20110705385

PATIENT
  Sex: Female

DRUGS (7)
  1. SYNTHROID [Concomitant]
     Indication: HYPOTHYROIDISM
     Route: 048
     Dates: start: 20090101
  2. IMITREX [Concomitant]
     Indication: MIGRAINE
     Route: 048
     Dates: start: 19900101
  3. MORPHINE [Concomitant]
     Indication: BREAKTHROUGH PAIN
     Route: 048
     Dates: start: 20080101
  4. DURAGESIC-100 [Suspect]
     Indication: SPINAL COLUMN STENOSIS
     Route: 062
  5. DURAGESIC-100 [Suspect]
     Route: 062
     Dates: start: 20030101
  6. IMITREX [Concomitant]
     Route: 065
     Dates: start: 19900101
  7. PREMARIN [Concomitant]
     Indication: HORMONE THERAPY
     Route: 048
     Dates: start: 19950101

REACTIONS (7)
  - PAIN [None]
  - DISORIENTATION [None]
  - PALPITATIONS [None]
  - DEHYDRATION [None]
  - VOMITING [None]
  - INFLUENZA [None]
  - HEADACHE [None]
